FAERS Safety Report 24168306 (Version 1)
Quarter: 2024Q3

REPORT INFORMATION
  Report Type: Spontaneous
  Country: US (occurrence: None)
  Receive Date: 20240802
  Receipt Date: 20240802
  Transmission Date: 20241017
  Serious: Yes (Other)
  Sender: Public
  Company Number: None

PATIENT
  Age: 77 Year
  Sex: Female

DRUGS (1)
  1. GLEEVEC [Suspect]
     Active Substance: IMATINIB MESYLATE
     Indication: Chronic myeloid leukaemia
     Dosage: FREQUENCY : DAILY;?

REACTIONS (6)
  - Muscle spasms [None]
  - Osteoporosis [None]
  - Ulcer haemorrhage [None]
  - Intervertebral disc degeneration [None]
  - Osteoarthritis [None]
  - Full blood count abnormal [None]
